FAERS Safety Report 7239384-8 (Version None)
Quarter: 2011Q1

REPORT INFORMATION
  Report Type: 
  Country: None (occurrence: None)
  Receive Date: 20110121
  Receipt Date: 20110114
  Transmission Date: 20110831
  Serious: Yes (Other)
  Sender: FDA-Public Use
  Company Number: ES-PFIZER INC-2011002156

PATIENT
  Age: 76 Year
  Sex: Male

DRUGS (1)
  1. LYRICA [Suspect]
     Indication: NEURALGIA
     Dosage: 150 MG, 2X/DAY
     Route: 065
     Dates: start: 20100801

REACTIONS (4)
  - RESPIRATORY DISTRESS [None]
  - CHILLS [None]
  - ALCOHOL INTERACTION [None]
  - HYPERAESTHESIA [None]
